FAERS Safety Report 9126988 (Version 1)
Quarter: 2013Q1

REPORT INFORMATION
  Report Type: Report from Study
  Country: JP (occurrence: JP)
  Receive Date: 20130122
  Receipt Date: 20130122
  Transmission Date: 20140127
  Serious: Yes (Other)
  Sender: FDA-Public Use
  Company Number: JP-PFIZER INC-HQWYE025815DEC05

PATIENT
  Age: 59 Year
  Sex: Male
  Weight: 56 kg

DRUGS (22)
  1. MYLOTARG [Suspect]
     Indication: ACUTE MYELOID LEUKAEMIA RECURRENT
     Dosage: 16 MG (9 MG/M2), 1X/DAY
     Route: 041
     Dates: start: 20051130, end: 20051130
  2. VFEND [Suspect]
     Indication: BACTERIAL INFECTION
     Dosage: 400 MG, 1X/DAY
     Route: 041
     Dates: start: 20051207, end: 20051209
  3. ZOVIRAX [Concomitant]
     Dosage: UNK
     Route: 041
     Dates: start: 20060124, end: 20060131
  4. ALPROSTADIL [Concomitant]
     Dosage: UNK
     Route: 042
     Dates: start: 20051202
  5. AMIKACIN SULFATE [Concomitant]
     Dosage: UNK
     Route: 041
     Dates: start: 20051119, end: 20051207
  6. STRONG NEO-MINOPHAGEN C [Concomitant]
     Dosage: UNK
     Route: 041
     Dates: start: 20051127, end: 20051209
  7. FUNGIZONE [Concomitant]
     Dosage: UNK
     Route: 041
     Dates: start: 20060105
  8. HABEKACIN [Concomitant]
     Dosage: UNK
     Route: 041
     Dates: start: 20051207, end: 20051209
  9. CARBENIN [Concomitant]
     Dosage: UNK
     Route: 041
     Dates: start: 20051119, end: 20051127
  10. TIENAM [Concomitant]
     Dosage: UNK
     Route: 041
     Dates: start: 20051214
  11. DALACIN-S [Concomitant]
     Dosage: UNK
     Route: 041
     Dates: start: 20060121, end: 20060131
  12. GASTER [Concomitant]
     Dosage: UNK
     Route: 042
     Dates: start: 20051127
  13. ITRIZOLE [Concomitant]
     Dosage: UNK
     Route: 048
     Dates: start: 20051127
  14. MEROPEN [Concomitant]
     Dosage: UNK
     Route: 041
     Dates: start: 20051127, end: 20051204
  15. FUNGUARD [Concomitant]
     Dosage: UNK
     Route: 041
     Dates: start: 20051119
  16. MINOMYCIN [Concomitant]
     Dosage: UNK
     Route: 041
     Dates: start: 20051119, end: 20051207
  17. BAKTAR [Concomitant]
     Dosage: UNK
     Route: 048
     Dates: start: 20051127
  18. TARGOCID [Concomitant]
     Dosage: UNK
     Route: 041
     Dates: start: 20051224
  19. TARGOCID [Concomitant]
     Dosage: UNK
     Route: 041
     Dates: start: 20051127, end: 20051222
  20. OZEX [Concomitant]
     Dosage: UNK
     Route: 048
     Dates: start: 20051127
  21. URSO [Concomitant]
     Dosage: UNK
     Route: 048
     Dates: start: 20051127
  22. VANCOMYCIN HYDROCHLORIDE [Concomitant]
     Dosage: UNK
     Route: 041
     Dates: start: 20051222, end: 20051224

REACTIONS (3)
  - Venoocclusive liver disease [Recovered/Resolved]
  - Drug-induced liver injury [Recovering/Resolving]
  - Interstitial lung disease [Recovered/Resolved]
